FAERS Safety Report 24341222 (Version 4)
Quarter: 2024Q4

REPORT INFORMATION
  Report Type: Spontaneous
  Country: JP (occurrence: JP)
  Receive Date: 20240919
  Receipt Date: 20241213
  Transmission Date: 20250115
  Serious: Yes (Hospitalization, Other)
  Sender: CSL BEHRING
  Company Number: JP-BEH-2024178609

PATIENT
  Age: 8 Decade
  Sex: Male
  Weight: 55 kg

DRUGS (2)
  1. IDELVION [Suspect]
     Active Substance: COAGULATION FACTOR IX RECOMBINANT HUMAN
     Indication: Factor IX deficiency
     Dosage: 5500 IU, Q3W
     Route: 042
     Dates: start: 2017, end: 202409
  2. IDELVION [Suspect]
     Active Substance: COAGULATION FACTOR IX RECOMBINANT HUMAN
     Indication: Factor IX deficiency
     Dosage: 5500 IU, Q3W
     Route: 042
     Dates: start: 2017, end: 202409

REACTIONS (5)
  - Cerebral haemorrhage [Fatal]
  - Subdural haematoma [Fatal]
  - Coma [Unknown]
  - Fall [Unknown]
  - Contusion [Unknown]

NARRATIVE: CASE EVENT DATE: 20240101
